FAERS Safety Report 17377160 (Version 1)
Quarter: 2020Q1

REPORT INFORMATION
  Report Type: Spontaneous
  Country: US (occurrence: US)
  Receive Date: 20200205
  Receipt Date: 20200205
  Transmission Date: 20200409
  Serious: Yes (Hospitalization)
  Sender: FDA-Public Use
  Company Number: None

PATIENT
  Sex: Female

DRUGS (7)
  1. ESTRADIOL. [Concomitant]
     Active Substance: ESTRADIOL
  2. VALACYCLOVIR [Concomitant]
     Active Substance: VALACYCLOVIR HYDROCHLORIDE
  3. ESTRING [Concomitant]
     Active Substance: ESTRADIOL
  4. LEVOTHYROXIN [Concomitant]
     Active Substance: LEVOTHYROXINE
  5. FLUTICASONE. [Concomitant]
     Active Substance: FLUTICASONE
  6. ENBREL [Suspect]
     Active Substance: ETANERCEPT
     Indication: RHEUMATOID ARTHRITIS
     Dosage: ?          OTHER FREQUENCY:WEEKLY;?
     Route: 058
     Dates: start: 20150527
  7. LEFLUNOMIDE. [Concomitant]
     Active Substance: LEFLUNOMIDE

REACTIONS (3)
  - Influenza [None]
  - Rheumatoid arthritis [None]
  - Therapy cessation [None]
